FAERS Safety Report 16729844 (Version 1)
Quarter: 2019Q3

REPORT INFORMATION
  Report Type: Spontaneous
  Country: US (occurrence: US)
  Receive Date: 20190822
  Receipt Date: 20190822
  Transmission Date: 20191005
  Serious: Yes (Other)
  Sender: FDA-Public Use
  Company Number: US-MYLANLABS-2019M1078000

PATIENT
  Age: 53 Year
  Sex: Male

DRUGS (2)
  1. NICOTINIC ACID [Suspect]
     Active Substance: NIACIN
     Dosage: FORMULATION: IMMEDIATE RELEASE
     Route: 065
  2. NICOTINIC ACID [Suspect]
     Active Substance: NIACIN
     Indication: HYPERLIPIDAEMIA
     Dosage: FORMULATION: IMMEDIATE RELEASE
     Route: 065

REACTIONS (3)
  - Maculopathy [Recovering/Resolving]
  - Retinal disorder [Recovering/Resolving]
  - Cystoid macular oedema [Recovered/Resolved]
